FAERS Safety Report 10385125 (Version 1)
Quarter: 2014Q3

REPORT INFORMATION
  Report Type: Spontaneous
  Country: TR (occurrence: TR)
  Receive Date: 20140814
  Receipt Date: 20140814
  Transmission Date: 20150326
  Serious: Yes (Other)
  Sender: FDA-Public Use
  Company Number: TR-ASTRAZENECA-2014SE57044

PATIENT
  Age: 45 Year
  Sex: Male
  Weight: 78 kg

DRUGS (2)
  1. PROPOFOL. [Suspect]
     Active Substance: PROPOFOL
     Indication: SEDATION
     Route: 042
  2. DEXMEDETOMIDINE [Suspect]
     Active Substance: DEXMEDETOMIDINE
     Indication: SEDATION
     Dosage: 1 UG/KG
     Route: 065

REACTIONS (1)
  - Systemic inflammatory response syndrome [Unknown]
